FAERS Safety Report 6945658-8 (Version None)
Quarter: 2010Q3

REPORT INFORMATION
  Report Type: 
  Country: None (occurrence: None)
  Receive Date: 20100827
  Receipt Date: 20100825
  Transmission Date: 20110219
  Serious: Yes (Life-Threatening, Hospitalization, Disabling, Other)
  Sender: FDA-Public Use
  Company Number: US-MERCK-1007USA02380

PATIENT
  Age: 59 Year
  Sex: Male
  Weight: 107 kg

DRUGS (5)
  1. JANUVIA [Suspect]
     Indication: TYPE 2 DIABETES MELLITUS
     Route: 048
     Dates: start: 20100601, end: 20100623
  2. JANUVIA [Suspect]
     Route: 048
  3. ONGLYZA [Suspect]
     Route: 065
  4. GLYBURIDE AND METFORMIN HYDROCHLORIDE [Concomitant]
     Route: 065
  5. ACTOS [Concomitant]
     Route: 065

REACTIONS (4)
  - ABDOMINAL PAIN [None]
  - GLYCOSYLATED HAEMOGLOBIN INCREASED [None]
  - NAUSEA [None]
  - VOMITING [None]
